FAERS Safety Report 17778108 (Version 3)
Quarter: 2020Q3

REPORT INFORMATION
  Report Type: Report from Study
  Country: AU (occurrence: AU)
  Receive Date: 20200513
  Receipt Date: 20200720
  Transmission Date: 20201104
  Serious: Yes (Hospitalization)
  Sender: FDA-Public Use
  Company Number: AU-BEIGENE AUS PTY LTD-BGN-2020-000694

PATIENT

DRUGS (7)
  1. TISLELIZUMAB. [Suspect]
     Active Substance: TISLELIZUMAB
     Indication: LYMPHOMA TRANSFORMATION
     Dosage: 200 MILLIGRAM, Q3WK
     Route: 042
     Dates: start: 20191022, end: 20200428
  2. TISLELIZUMAB. [Suspect]
     Active Substance: TISLELIZUMAB
     Dosage: 200 MILLIGRAM, Q3WK
     Route: 042
     Dates: start: 20200505
  3. BISOPROLOL [Concomitant]
     Active Substance: BISOPROLOL
     Indication: PRODUCT USED FOR UNKNOWN INDICATION
     Dosage: 1.25 MILLIGRAM, QD
     Route: 048
  4. AMLODIPINE [Concomitant]
     Active Substance: AMLODIPINE BESYLATE
     Indication: PRODUCT USED FOR UNKNOWN INDICATION
     Dosage: 10 MILLIGRAM, QD
     Route: 048
  5. COLOXYL [Concomitant]
     Indication: PRODUCT USED FOR UNKNOWN INDICATION
     Dosage: 2 DOSAGE FORM, BID
     Route: 048
  6. BGB?3111 [Suspect]
     Active Substance: ZANUBRUTINIB
     Indication: LYMPHOMA TRANSFORMATION
     Dosage: 160 MILLIGRAM, BID
     Route: 048
     Dates: start: 20191022, end: 20200428
  7. BGB?3111 [Suspect]
     Active Substance: ZANUBRUTINIB
     Dosage: 160 MILLIGRAM, BID
     Route: 048
     Dates: start: 20200505

REACTIONS (1)
  - Melaena [Recovered/Resolved]

NARRATIVE: CASE EVENT DATE: 20200428
